FAERS Safety Report 9230685 (Version 3)
Quarter: 2013Q4

REPORT INFORMATION
  Report Type: Spontaneous
  Country: US (occurrence: None)
  Receive Date: 20121031
  Receipt Date: 20131226
  Transmission Date: 20140711
  Serious: Yes (Other)
  Sender: FDA-Public Use
  Company Number: PHEH2012US016710

PATIENT
  Age: 65 Year
  Sex: Female
  Weight: 74.8 kg

DRUGS (5)
  1. GILENYA [Suspect]
     Indication: MULTIPLE SCLEROSIS
     Route: 048
     Dates: start: 20120329
  2. BACLOFEN [Concomitant]
  3. BUPROPION (BUPROPION) [Concomitant]
  4. CELEXA (CITALOPRAM HYDROBROMIDE) [Concomitant]
  5. TIZANIDINE HYDROCHLORIDE [Concomitant]

REACTIONS (6)
  - Pain in extremity [None]
  - Hypoaesthesia [None]
  - Muscle spasms [None]
  - Gait disturbance [None]
  - Memory impairment [None]
  - Balance disorder [None]
